FAERS Safety Report 16864007 (Version 1)
Quarter: 2019Q3

REPORT INFORMATION
  Report Type: Report from Study
  Country: DE (occurrence: DE)
  Receive Date: 20190927
  Receipt Date: 20190927
  Transmission Date: 20191005
  Serious: Yes (Hospitalization, Other)
  Sender: FDA-Public Use
  Company Number: PHHY2019DE084353

PATIENT
  Sex: Female
  Weight: 72 kg

DRUGS (21)
  1. COSENTYX [Suspect]
     Active Substance: SECUKINUMAB
     Dosage: 150 MG, PER APPLICATION (PREFILLED PEN)
     Route: 065
     Dates: start: 20180517
  2. COSENTYX [Suspect]
     Active Substance: SECUKINUMAB
     Dosage: 300 MG,  APPLICATION (PREFILLED PEN)
     Route: 065
     Dates: start: 20181018
  3. COSENTYX [Suspect]
     Active Substance: SECUKINUMAB
     Dosage: 300 MG,  APPLICATION (PREFILLED PEN)
     Route: 065
     Dates: start: 20181115
  4. COSENTYX [Suspect]
     Active Substance: SECUKINUMAB
     Dosage: 150 MG, PER APPLICATION (PREFILLED PEN)
     Route: 065
     Dates: start: 20180524
  5. COSENTYX [Suspect]
     Active Substance: SECUKINUMAB
     Dosage: 150 MG, PER APPLICATION (PREFILLED PEN)
     Route: 065
     Dates: start: 20180726
  6. COSENTYX [Suspect]
     Active Substance: SECUKINUMAB
     Dosage: 300 MG, PER APPLICATION (PREFILLED PEN)
     Route: 065
     Dates: start: 20190405
  7. COSENTYX [Suspect]
     Active Substance: SECUKINUMAB
     Dosage: 300 MG, PER APPLICATION (PREFILLED PEN)
     Route: 065
     Dates: start: 20190503
  8. COSENTYX [Suspect]
     Active Substance: SECUKINUMAB
     Dosage: UNK, ONCE/SINGLE
     Route: 065
     Dates: start: 20190111, end: 20190111
  9. PREDNISOLONE. [Concomitant]
     Active Substance: PREDNISOLONE
     Dosage: 5 MG, ONCE PER DAY (IN THE MORNING)
     Route: 048
     Dates: start: 20190711
  10. AMITRIPTYLINE [Concomitant]
     Active Substance: AMITRIPTYLINE
     Indication: SLEEP DISORDER
     Dosage: 5 GTT, QHS
     Route: 048
     Dates: start: 20181123
  11. COSENTYX [Suspect]
     Active Substance: SECUKINUMAB
     Indication: PSORIATIC ARTHROPATHY
     Dosage: UNK, ONCE/SINGLE
     Route: 065
     Dates: start: 20180510
  12. COSENTYX [Suspect]
     Active Substance: SECUKINUMAB
     Dosage: 150 MG, PER APPLICATION (PREFILLED PEN)
     Route: 065
     Dates: start: 20180531
  13. COSENTYX [Suspect]
     Active Substance: SECUKINUMAB
     Dosage: 150 MG, PER APPLICATION (PREFILLED PEN)
     Route: 065
     Dates: start: 20180628
  14. COSENTYX [Suspect]
     Active Substance: SECUKINUMAB
     Dosage: 150 MG, PER APPLICATION (PREFILLED PEN)
     Route: 065
     Dates: start: 20180823
  15. COSENTYX [Suspect]
     Active Substance: SECUKINUMAB
     Dosage: 300 MG, PER APPLICATION (PRE-FILLED PEN)
     Route: 065
     Dates: start: 20181214, end: 20181214
  16. COSENTYX [Suspect]
     Active Substance: SECUKINUMAB
     Dosage: 300 MG, PER APPLICATION (PREFILLED PEN)
     Route: 065
     Dates: start: 20190628
  17. COSENTYX [Suspect]
     Active Substance: SECUKINUMAB
     Dosage: 150 MG, PER APPLICATION (PREFILLED PEN)
     Route: 065
     Dates: start: 20180920
  18. COSENTYX [Suspect]
     Active Substance: SECUKINUMAB
     Dosage: 300 MG, PER APPLICATION (PREFILLED PEN)
     Route: 065
     Dates: start: 20190308
  19. COSENTYX [Suspect]
     Active Substance: SECUKINUMAB
     Dosage: 300 MG, PER APPLICATION (PREFILLED PEN)
     Route: 065
     Dates: start: 20190531
  20. COSENTYX [Suspect]
     Active Substance: SECUKINUMAB
     Dosage: 300 MG, PER APPLICATION (PREFILLED PEN)
     Route: 065
     Dates: start: 20190208
  21. PREDNISOLONE. [Concomitant]
     Active Substance: PREDNISOLONE
     Indication: RHEUMATIC DISORDER
     Dosage: 5 MG, QD (MORNING)
     Route: 048

REACTIONS (2)
  - Depression [Not Recovered/Not Resolved]
  - Psoriatic arthropathy [Recovered/Resolved]

NARRATIVE: CASE EVENT DATE: 20181123
